FAERS Safety Report 16940025 (Version 15)
Quarter: 2020Q4

REPORT INFORMATION
  Report Type: Report from Study
  Country: CN (occurrence: CN)
  Receive Date: 20191021
  Receipt Date: 20201015
  Transmission Date: 20210113
  Serious: Yes (Life-Threatening, Hospitalization)
  Sender: FDA-Public Use
  Company Number: CN-ROCHE-2444246

PATIENT
  Age: 54 Year
  Sex: Female
  Weight: 46.5 kg

DRUGS (51)
  1. TROPISETRON [Concomitant]
     Active Substance: TROPISETRON
     Indication: PROPHYLAXIS OF NAUSEA AND VOMITING
     Dates: start: 20190920, end: 20190920
  2. VITAMIN C [Concomitant]
     Active Substance: ASCORBIC ACID
     Dates: start: 20190920, end: 20190920
  3. POTASSIUM CHLORIDE. [Concomitant]
     Active Substance: POTASSIUM CHLORIDE
     Dates: start: 20190830, end: 20190830
  4. POTASSIUM CHLORIDE. [Concomitant]
     Active Substance: POTASSIUM CHLORIDE
     Dates: start: 20191013, end: 20191013
  5. DIAZEPAM. [Concomitant]
     Active Substance: DIAZEPAM
     Route: 042
     Dates: start: 20190830, end: 20190830
  6. AESCIN [Concomitant]
     Dates: start: 20190807
  7. METOPROLOL. [Concomitant]
     Active Substance: METOPROLOL
     Indication: ARRHYTHMIA
     Dates: start: 20191015, end: 20191017
  8. PACLITAXEL. [Suspect]
     Active Substance: PACLITAXEL
     Indication: FALLOPIAN TUBE CANCER
  9. PACLITAXEL. [Suspect]
     Active Substance: PACLITAXEL
     Indication: OVARIAN CANCER
  10. DIPHENHYDRAMINE. [Concomitant]
     Active Substance: DIPHENHYDRAMINE
     Dates: start: 20190807, end: 20190807
  11. DIPHENHYDRAMINE. [Concomitant]
     Active Substance: DIPHENHYDRAMINE
     Dates: start: 20190830, end: 20190830
  12. RANITIDINE. [Concomitant]
     Active Substance: RANITIDINE
     Dates: start: 20190807, end: 20190807
  13. DEXAMETHASONE. [Concomitant]
     Active Substance: DEXAMETHASONE
     Dates: start: 20190920, end: 20190920
  14. VITAMIN B6 [Concomitant]
     Active Substance: PYRIDOXINE HYDROCHLORIDE
     Dates: start: 20190807, end: 20190807
  15. VITAMIN B6 [Concomitant]
     Active Substance: PYRIDOXINE HYDROCHLORIDE
     Dates: start: 20191013, end: 20191013
  16. POTASSIUM CHLORIDE. [Concomitant]
     Active Substance: POTASSIUM CHLORIDE
     Dates: start: 20191011, end: 20191017
  17. METOCLOPRAMIDE. [Concomitant]
     Active Substance: METOCLOPRAMIDE
     Indication: PROPHYLAXIS
     Dates: start: 20190920, end: 20190920
  18. METOCLOPRAMIDE. [Concomitant]
     Active Substance: METOCLOPRAMIDE
     Dates: start: 20191101, end: 20191101
  19. DIAZEPAM. [Concomitant]
     Active Substance: DIAZEPAM
     Route: 042
     Dates: start: 20191101, end: 20191101
  20. TROPISETRON [Concomitant]
     Active Substance: TROPISETRON
     Dates: start: 20190807, end: 20190807
  21. RANITIDINE. [Concomitant]
     Active Substance: RANITIDINE
     Dates: start: 20190830, end: 20190830
  22. DEXAMETHASONE. [Concomitant]
     Active Substance: DEXAMETHASONE
     Dates: start: 20190830, end: 20190830
  23. VITAMIN B6 [Concomitant]
     Active Substance: PYRIDOXINE HYDROCHLORIDE
     Dates: start: 20191101, end: 20191101
  24. POTASSIUM CHLORIDE. [Concomitant]
     Active Substance: POTASSIUM CHLORIDE
     Dates: start: 20191101, end: 20191101
  25. POTASSIUM CHLORIDE. [Concomitant]
     Active Substance: POTASSIUM CHLORIDE
     Dates: start: 20190807, end: 20190807
  26. METOCLOPRAMIDE. [Concomitant]
     Active Substance: METOCLOPRAMIDE
     Dates: start: 20190807, end: 20190807
  27. METOCLOPRAMIDE. [Concomitant]
     Active Substance: METOCLOPRAMIDE
     Dates: start: 20190830, end: 20190830
  28. RIVAROXABAN [Concomitant]
     Active Substance: RIVAROXABAN
     Dates: start: 20190602, end: 201906
  29. METOPROLOL. [Concomitant]
     Active Substance: METOPROLOL
     Dates: start: 20191012, end: 20191012
  30. CARBOPLATIN. [Suspect]
     Active Substance: CARBOPLATIN
     Indication: MALIGNANT PERITONEAL NEOPLASM
     Dosage: AREA UNDER THE CURVE (AUC) OF 6 MG/ML/MIN ON DAY 1 OF EACH 21-DAY CYCLE.?DATE OF MOST RECENT DOSE OF
     Route: 042
     Dates: start: 20190604
  31. CARBOPLATIN. [Suspect]
     Active Substance: CARBOPLATIN
     Indication: FALLOPIAN TUBE CANCER
  32. CARBOPLATIN. [Suspect]
     Active Substance: CARBOPLATIN
     Indication: OVARIAN CANCER
  33. TROPISETRON [Concomitant]
     Active Substance: TROPISETRON
     Dates: start: 20190830, end: 20190830
  34. DEXAMETHASONE. [Concomitant]
     Active Substance: DEXAMETHASONE
     Dates: start: 20190807, end: 20190807
  35. VITAMIN B6 [Concomitant]
     Active Substance: PYRIDOXINE HYDROCHLORIDE
     Dates: start: 20190920, end: 20190920
  36. POTASSIUM CHLORIDE. [Concomitant]
     Active Substance: POTASSIUM CHLORIDE
     Dates: start: 20190920, end: 20190920
  37. POTASSIUM CHLORIDE. [Concomitant]
     Active Substance: POTASSIUM CHLORIDE
     Dates: start: 20191012
  38. DIAZEPAM. [Concomitant]
     Active Substance: DIAZEPAM
     Route: 042
     Dates: start: 20190920, end: 20190920
  39. VITAMIN B6 [Concomitant]
     Active Substance: PYRIDOXINE HYDROCHLORIDE
     Dates: start: 20190830, end: 20190830
  40. DIAZEPAM. [Concomitant]
     Active Substance: DIAZEPAM
     Route: 042
     Dates: start: 20190807, end: 20190807
  41. BEVACIZUMAB. [Suspect]
     Active Substance: BEVACIZUMAB
     Indication: MALIGNANT PERITONEAL NEOPLASM
     Dosage: DATE OF MOST RECENT DOSE OF BEVACIZUMAB (705 MG) PRIOR TO SAE ONSET: 20/SEP/2019.
     Route: 042
     Dates: start: 20190625
  42. DIPHENHYDRAMINE. [Concomitant]
     Active Substance: DIPHENHYDRAMINE
     Dates: start: 20190920, end: 20190920
  43. RANITIDINE. [Concomitant]
     Active Substance: RANITIDINE
     Dates: start: 20190920, end: 20190920
  44. VITAMIN C [Concomitant]
     Active Substance: ASCORBIC ACID
     Dates: start: 20190807, end: 20190807
  45. VITAMIN B6 [Concomitant]
     Active Substance: PYRIDOXINE HYDROCHLORIDE
     Dates: start: 20190717, end: 20190817
  46. PACLITAXEL. [Suspect]
     Active Substance: PACLITAXEL
     Indication: MALIGNANT PERITONEAL NEOPLASM
     Dosage: DATE OF MOST RECENT DOSE OF PACLITAXEL PRIOR TO SAE ONSET: 20/SEP/2019 (240 MG)?DATE OF MOST RECENT
     Route: 042
     Dates: start: 20190604
  47. TROPISETRON [Concomitant]
     Active Substance: TROPISETRON
     Dates: start: 20191101, end: 20191101
  48. DEXAMETHASONE. [Concomitant]
     Active Substance: DEXAMETHASONE
     Dates: start: 20191012, end: 20191012
  49. VITAMIN C [Concomitant]
     Active Substance: ASCORBIC ACID
     Dates: start: 20191101, end: 20191101
  50. VITAMIN C [Concomitant]
     Active Substance: ASCORBIC ACID
     Dates: start: 20190830, end: 20190830
  51. VITAMIN C [Concomitant]
     Active Substance: ASCORBIC ACID
     Dates: start: 20191013, end: 20191013

REACTIONS (1)
  - Myelosuppression [Recovered/Resolved]

NARRATIVE: CASE EVENT DATE: 20190818
